FAERS Safety Report 8539555 (Version 3)
Quarter: 2012Q4

REPORT INFORMATION
  Report Type: Report from Study
  Country: JP (occurrence: JP)
  Receive Date: 20120502
  Receipt Date: 20120907
  Transmission Date: 20130627
  Serious: Yes (Life-Threatening)
  Sender: FDA-Public Use
  Company Number: JP-BRISTOL-MYERS SQUIBB COMPANY-16380115

PATIENT
  Age: 68 Year
  Sex: Male
  Weight: 74 kg

DRUGS (2)
  1. SPRYCEL [Suspect]
     Indication: CHRONIC MYELOID LEUKAEMIA
     Dosage: 60mg/1d
     Route: 048
     Dates: start: 20120113, end: 20120122
  2. BAYASPIRIN [Concomitant]
     Route: 048

REACTIONS (3)
  - Diverticular perforation [Recovered/Resolved]
  - Abscess intestinal [Recovered/Resolved]
  - Acute respiratory distress syndrome [Recovered/Resolved]
